FAERS Safety Report 26123159 (Version 2)
Quarter: 2025Q4

REPORT INFORMATION
  Report Type: Spontaneous
  Country: CN (occurrence: CN)
  Receive Date: 20251204
  Receipt Date: 20251215
  Transmission Date: 20260117
  Serious: Yes (Hospitalization, Other)
  Sender: PFIZER
  Company Number: CN-TAKEDA-2025TUS109182

PATIENT
  Age: 77 Year
  Sex: Male

DRUGS (3)
  1. BRENTUXIMAB VEDOTIN [Suspect]
     Active Substance: BRENTUXIMAB VEDOTIN
     Indication: Angiocentric lymphoma stage IV
     Dosage: 100 MILLIGRAM, QD
     Route: 042
     Dates: start: 20250929, end: 20250929
  2. METHOTREXATE SODIUM [Suspect]
     Active Substance: METHOTREXATE SODIUM
     Indication: Angiocentric lymphoma stage IV
     Dosage: 1.5 GRAM, QD
     Route: 041
     Dates: start: 20250930, end: 20250930
  3. PEGASPARGASE [Suspect]
     Active Substance: PEGASPARGASE
     Indication: Angiocentric lymphoma stage IV
     Dosage: 3000 IU, 1X/DAY
     Route: 030
     Dates: start: 20250930, end: 20250930

REACTIONS (1)
  - Myelosuppression [Unknown]

NARRATIVE: CASE EVENT DATE: 20250930
